FAERS Safety Report 26087451 (Version 3)
Quarter: 2025Q4

REPORT INFORMATION
  Report Type: Spontaneous
  Country: CA (occurrence: CA)
  Receive Date: 20251125
  Receipt Date: 20251205
  Transmission Date: 20260118
  Serious: Yes (Other)
  Sender: PFIZER
  Company Number: CA-PFIZER INC-202500146356

PATIENT
  Age: 28 Year
  Sex: Female
  Weight: 67 kg

DRUGS (4)
  1. IXIFI [Suspect]
     Active Substance: INFLIXIMAB-QBTX
     Indication: Crohn^s disease
     Dosage: 5 MG/KG, EVERY 8 WEEKS
     Route: 042
     Dates: start: 20250805
  2. IXIFI [Suspect]
     Active Substance: INFLIXIMAB-QBTX
     Dosage: 335 MG, AFTER 8 WEEKS AND 1 DAY
     Route: 042
     Dates: start: 20251001
  3. IXIFI [Suspect]
     Active Substance: INFLIXIMAB-QBTX
     Dosage: AT HALF RATE
     Route: 042
     Dates: start: 20251001
  4. PURINETHOL [Concomitant]
     Active Substance: MERCAPTOPURINE
     Dosage: 1 DF
     Dates: start: 202110

REACTIONS (14)
  - Uveitis [Not Recovered/Not Resolved]
  - Corneal perforation [Unknown]
  - Arthritis [Not Recovered/Not Resolved]
  - Headache [Recovered/Resolved]
  - Throat tightness [Recovered/Resolved]
  - Dyspnoea [Recovered/Resolved]
  - Pruritus [Recovered/Resolved]
  - Pyrexia [Unknown]
  - Gingival swelling [Not Recovered/Not Resolved]
  - Gingival bleeding [Not Recovered/Not Resolved]
  - Arthralgia [Not Recovered/Not Resolved]
  - Condition aggravated [Not Recovered/Not Resolved]
  - Chest discomfort [Unknown]
  - Nausea [Unknown]

NARRATIVE: CASE EVENT DATE: 20250101
